FAERS Safety Report 19985033 (Version 1)
Quarter: 2021Q4

REPORT INFORMATION
  Report Type: Spontaneous
  Country: FR (occurrence: FR)
  Receive Date: 20211022
  Receipt Date: 20211022
  Transmission Date: 20220303
  Serious: Yes (Other)
  Sender: FDA-Public Use
  Company Number: FR-ABBVIE-21K-056-4131811-00

PATIENT
  Age: 22 Year
  Sex: Male

DRUGS (6)
  1. VALPROATE SODIUM [Suspect]
     Active Substance: VALPROATE SODIUM
     Indication: Product used for unknown indication
     Route: 048
     Dates: start: 20190401, end: 20190425
  2. LITHIUM [Suspect]
     Active Substance: LITHIUM
     Indication: Product used for unknown indication
     Route: 048
     Dates: start: 20190405
  3. LITHIUM [Suspect]
     Active Substance: LITHIUM
     Route: 048
  4. DIAZEPAM [Suspect]
     Active Substance: DIAZEPAM
     Indication: Product used for unknown indication
     Route: 048
  5. LEVOMEPROMAZINE [Suspect]
     Active Substance: LEVOMEPROMAZINE
     Indication: Product used for unknown indication
     Route: 048
  6. OLANZAPINE [Suspect]
     Active Substance: OLANZAPINE
     Indication: Product used for unknown indication
     Route: 048

REACTIONS (11)
  - Eosinophilia [Not Recovered/Not Resolved]
  - Headache [Recovering/Resolving]
  - Drug reaction with eosinophilia and systemic symptoms [Recovering/Resolving]
  - Neck pain [Recovering/Resolving]
  - Rash maculo-papular [Recovered/Resolved]
  - Nasal congestion [Recovering/Resolving]
  - Nasopharyngitis [Recovered/Resolved]
  - Blood creatine phosphokinase increased [Recovered/Resolved]
  - Asthenia [Recovering/Resolving]
  - Swelling face [Recovering/Resolving]
  - Pyrexia [Recovered/Resolved]

NARRATIVE: CASE EVENT DATE: 20190421
